FAERS Safety Report 16248000 (Version 1)
Quarter: 2019Q2

REPORT INFORMATION
  Report Type: Spontaneous
  Country: US (occurrence: US)
  Receive Date: 20190325
  Receipt Date: 20190325
  Transmission Date: 20190711
  Serious: Yes (Other)
  Sender: FDA-Public Use
  Company Number: None

PATIENT
  Age: 21 Year
  Sex: Female

DRUGS (3)
  1. YAZ (GENERIC) 3MG - 0.02MG [Suspect]
     Active Substance: DROSPIRENONE\ETHINYL ESTRADIOL
     Indication: DYSMENORRHOEA
     Route: 048
     Dates: start: 20150119, end: 20180419
  2. YAZ (GENERIC) 3MG - 0.02MG [Suspect]
     Active Substance: DROSPIRENONE\ETHINYL ESTRADIOL
     Indication: CONTRACEPTION
     Route: 048
     Dates: start: 20150119, end: 20180419
  3. YAZ (GENERIC) 3MG - 0.02MG [Suspect]
     Active Substance: DROSPIRENONE\ETHINYL ESTRADIOL
     Indication: MENSTRUATION IRREGULAR
     Route: 048
     Dates: start: 20150119, end: 20180419

REACTIONS (3)
  - Product substitution issue [None]
  - Muscle spasms [None]
  - Haemorrhage [None]

NARRATIVE: CASE EVENT DATE: 20180419
